FAERS Safety Report 25777677 (Version 3)
Quarter: 2025Q4

REPORT INFORMATION
  Report Type: Spontaneous
  Country: US (occurrence: US)
  Receive Date: 20250909
  Receipt Date: 20251016
  Transmission Date: 20260117
  Serious: No
  Sender: SOLARIS PHARMA CORPORATION
  Company Number: US-SPC-000691

PATIENT
  Age: 54 Year
  Sex: Female

DRUGS (1)
  1. ESTRADIOL [Suspect]
     Active Substance: ESTRADIOL
     Indication: Product used for unknown indication
     Route: 065

REACTIONS (2)
  - Device delivery system issue [Unknown]
  - Feeling abnormal [Unknown]
